FAERS Safety Report 17591434 (Version 1)
Quarter: 2020Q1

REPORT INFORMATION
  Report Type: Spontaneous
  Country: SE (occurrence: SE)
  Receive Date: 20200327
  Receipt Date: 20200327
  Transmission Date: 20200409
  Serious: Yes (Other)
  Sender: FDA-Public Use
  Company Number: SE-PERRIGO-20SE004425

PATIENT

DRUGS (1)
  1. NIQUITIN [Suspect]
     Active Substance: NICOTINE
     Indication: PRODUCT USED FOR UNKNOWN INDICATION
     Dosage: UNK
     Route: 062
     Dates: start: 2020

REACTIONS (3)
  - Erythema [Unknown]
  - Anaphylactic shock [Unknown]
  - Application site pruritus [Unknown]

NARRATIVE: CASE EVENT DATE: 202003
